FAERS Safety Report 8560866-0 (Version None)
Quarter: 2012Q3

REPORT INFORMATION
  Report Type: 
  Country: None (occurrence: None)
  Receive Date: 20120727
  Receipt Date: 20120727
  Transmission Date: 20120928
  Serious: Yes (Hospitalization)
  Sender: FDA-Public Use
  Company Number: None

PATIENT
  Age: 69 Year
  Sex: Female
  Weight: 126.4 kg

DRUGS (8)
  1. MAGNESIUM HYDROXIDE TAB [Concomitant]
  2. LIDOCAINE HCL VISCOUS [Concomitant]
  3. LOVENOX [Suspect]
     Indication: DEEP VEIN THROMBOSIS
     Dosage: 130MG Q 12HRS SQ CHRONIC
     Route: 058
  4. LORTAB [Concomitant]
  5. ZOFRAN [Concomitant]
  6. CARAFATE [Concomitant]
  7. LASIX [Concomitant]
  8. PREVACID [Concomitant]

REACTIONS (2)
  - HAEMATOMA [None]
  - ABDOMINAL PAIN [None]
